FAERS Safety Report 13718425 (Version 3)
Quarter: 2017Q4

REPORT INFORMATION
  Report Type: Report from Study
  Country: CO (occurrence: CO)
  Receive Date: 20170705
  Receipt Date: 20171026
  Transmission Date: 20180320
  Serious: Yes (Hospitalization, Other)
  Sender: FDA-Public Use
  Company Number: CO-AMGEN-COLSL2017099374

PATIENT
  Age: 41 Year
  Sex: Female

DRUGS (1)
  1. VECTIBIX [Suspect]
     Active Substance: PANITUMUMAB
     Indication: COLORECTAL CANCER METASTATIC
     Dosage: 400 MG, Q2WK
     Route: 042
     Dates: start: 20170614, end: 20170710

REACTIONS (4)
  - Rash [Not Recovered/Not Resolved]
  - Rash pustular [Not Recovered/Not Resolved]
  - Seizure [Not Recovered/Not Resolved]
  - Pruritus [Not Recovered/Not Resolved]

NARRATIVE: CASE EVENT DATE: 20170627
